FAERS Safety Report 26059444 (Version 1)
Quarter: 2025Q4

REPORT INFORMATION
  Report Type: Report from Study
  Country: BR (occurrence: BR)
  Receive Date: 20251118
  Receipt Date: 20251118
  Transmission Date: 20260118
  Serious: Yes (Death, Hospitalization)
  Sender: JOHNSON AND JOHNSON
  Company Number: BR-JNJFOC-20251158713

PATIENT
  Age: 77 Year
  Sex: Female
  Weight: 64 kg

DRUGS (3)
  1. GOLIMUMAB [Suspect]
     Active Substance: GOLIMUMAB
     Indication: Rheumatoid arthritis
     Route: 058
     Dates: start: 20250929, end: 20250929
  2. GOLIMUMAB [Suspect]
     Active Substance: GOLIMUMAB
  3. GOLIMUMAB [Suspect]
     Active Substance: GOLIMUMAB

REACTIONS (7)
  - Cardiac arrest [Fatal]
  - Haemorrhagic stroke [Fatal]
  - Pneumonia [Unknown]
  - Diabetes mellitus inadequate control [Unknown]
  - Emphysema [Unknown]
  - Decreased appetite [Unknown]
  - Mental status changes [Unknown]

NARRATIVE: CASE EVENT DATE: 20250929
